FAERS Safety Report 18894515 (Version 1)
Quarter: 2021Q1

REPORT INFORMATION
  Report Type: Spontaneous
  Country: AR (occurrence: AR)
  Receive Date: 20210215
  Receipt Date: 20210215
  Transmission Date: 20210420
  Serious: Yes (Other)
  Sender: FDA-Public Use
  Company Number: AR-PFIZER INC-2021120221

PATIENT
  Age: 90 Year
  Sex: Female

DRUGS (1)
  1. IBRANCE [Suspect]
     Active Substance: PALBOCICLIB
     Indication: BREAST CANCER METASTATIC
     Dosage: 100 MG, CYCLIC( DAILY 3X1 SCHEME)
     Dates: start: 20190827

REACTIONS (3)
  - Tumour haemorrhage [Unknown]
  - Neoplasm progression [Unknown]
  - Tumour ulceration [Unknown]

NARRATIVE: CASE EVENT DATE: 2020
